FAERS Safety Report 6499218-6 (Version None)
Quarter: 2009Q4

REPORT INFORMATION
  Report Type: 
  Country: None (occurrence: None)
  Receive Date: 20091215
  Receipt Date: 20091203
  Transmission Date: 20100525
  Serious: Yes (Life-Threatening, Disabling, Other)
  Sender: FDA-Public Use
  Company Number: GB-SANOFI-AVENTIS-A01200713584

PATIENT
  Sex: Male

DRUGS (6)
  1. OXALIPLATIN [Suspect]
     Route: 041
     Dates: start: 20070515, end: 20070515
  2. OXALIPLATIN [Suspect]
     Route: 041
     Dates: start: 20070915, end: 20070915
  3. FLUOROURACIL [Suspect]
     Route: 042
     Dates: start: 20070515, end: 20070515
  4. FLUOROURACIL [Suspect]
     Route: 042
     Dates: start: 20070915, end: 20070915
  5. BEVACIZUMAB [Suspect]
     Dosage: UNIT DOSE: 7.5 MG/KG
     Route: 042
     Dates: start: 20070515, end: 20070515
  6. BEVACIZUMAB [Suspect]
     Dosage: UNIT DOSE: 7.5 MG/KG
     Route: 042
     Dates: start: 20070915, end: 20070915

REACTIONS (1)
  - TRANSIENT ISCHAEMIC ATTACK [None]
